FAERS Safety Report 8518086-1 (Version None)
Quarter: 2012Q3

REPORT INFORMATION
  Report Type: 
  Country: None (occurrence: None)
  Receive Date: 20120718
  Receipt Date: 20110912
  Transmission Date: 20120928
  Serious: No
  Sender: FDA-Public Use
  Company Number: US-BRISTOL-MYERS SQUIBB COMPANY-16052326

PATIENT
  Age: 81 Year
  Sex: Female

DRUGS (5)
  1. COUMADIN [Suspect]
  2. FUROSEMIDE [Suspect]
  3. POTACOL-R [Suspect]
  4. QUINAPRIL [Suspect]
  5. SIMVASTATIN [Suspect]

REACTIONS (1)
  - TOOTH DISORDER [None]
